FAERS Safety Report 15005724 (Version 1)
Quarter: 2018Q2

REPORT INFORMATION
  Report Type: Spontaneous
  Country: US (occurrence: US)
  Receive Date: 20180521
  Receipt Date: 20180521
  Transmission Date: 20180711
  Serious: Yes (Hospitalization)
  Sender: FDA-Public Use
  Company Number: None

PATIENT
  Age: 32 Year
  Sex: Female
  Weight: 64 kg

DRUGS (2)
  1. IBUPROFEN. [Suspect]
     Active Substance: IBUPROFEN
     Indication: FLANK PAIN
     Dosage: 80-1600MG DAILY PO
     Route: 048
  2. NORTREL [Concomitant]
     Active Substance: ETHINYL ESTRADIOL\NORETHINDRONE

REACTIONS (4)
  - Pyelonephritis [None]
  - Cystitis [None]
  - Acute kidney injury [None]
  - Haematuria [None]

NARRATIVE: CASE EVENT DATE: 20180225
